FAERS Safety Report 14286291 (Version 1)
Quarter: 2017Q4

REPORT INFORMATION
  Report Type: Spontaneous
  Country: GB (occurrence: GB)
  Receive Date: 20171214
  Receipt Date: 20171214
  Transmission Date: 20180321
  Serious: Yes (Other)
  Sender: FDA-Public Use
  Company Number: GB-ALKABELLO-2017AA004079

PATIENT
  Age: 36 Year
  Sex: Female
  Weight: 65 kg

DRUGS (2)
  1. GRAZAX [Suspect]
     Active Substance: PHLEUM PRATENSE POLLEN
     Indication: SEASONAL ALLERGY
     Dosage: DOSE UNIT:75000 SQ-T
     Route: 060
     Dates: start: 20171103, end: 20171108
  2. GRAZAX [Suspect]
     Active Substance: PHLEUM PRATENSE POLLEN
     Indication: SEASONAL ALLERGY
     Dosage: DOSE UNIT:75000 SQ-T
     Route: 060
     Dates: start: 20171113, end: 20171123

REACTIONS (7)
  - Mouth swelling [Recovering/Resolving]
  - Diarrhoea [Recovered/Resolved]
  - Chest discomfort [Recovering/Resolving]
  - Pharyngeal oedema [Recovering/Resolving]
  - Lip swelling [Recovering/Resolving]
  - Vomiting [Recovered/Resolved]
  - Musculoskeletal chest pain [Recovering/Resolving]

NARRATIVE: CASE EVENT DATE: 20171108
